FAERS Safety Report 6538968-X (Version None)
Quarter: 2010Q1

REPORT INFORMATION
  Report Type: 
  Country: None (occurrence: None)
  Receive Date: 20100107
  Receipt Date: 20091124
  Transmission Date: 20100710
  Serious: Yes (Other)
  Sender: FDA-Public Use
  Company Number: 2009RR-29353

PATIENT
  Age: 27 Year
  Sex: Male

DRUGS (2)
  1. RANITIDINE [Suspect]
     Indication: ABDOMINAL PAIN UPPER
  2. RANITIDINE [Suspect]
     Indication: DYSPEPSIA

REACTIONS (1)
  - HEPATITIS [None]
